FAERS Safety Report 4638808-X (Version None)
Quarter: 2005Q2

REPORT INFORMATION
  Report Type: 
  Country: None (occurrence: None)
  Receive Date: 20050418
  Receipt Date: 20050418
  Transmission Date: 20051028
  Serious: Yes (Life-Threatening)
  Sender: FDA-Public Use
  Company Number: None

PATIENT
  Age: 37 Year
  Sex: Male
  Weight: 68.0396 kg

DRUGS (1)
  1. CHLORHEXIDINE  (I.V. START W/CHLORAPREP)    MEDLINE [Suspect]
     Dates: start: 20050417, end: 20050417

REACTIONS (1)
  - ANAPHYLACTIC REACTION [None]
